FAERS Safety Report 21783695 (Version 13)
Quarter: 2024Q3

REPORT INFORMATION
  Report Type: Spontaneous
  Country: US (occurrence: US)
  Receive Date: 20221227
  Receipt Date: 20240827
  Transmission Date: 20241016
  Serious: No
  Sender: PFIZER
  Company Number: US-PFIZER INC-PV202200129544

PATIENT
  Age: 70 Year
  Sex: Female

DRUGS (46)
  1. IBRANCE [Suspect]
     Active Substance: PALBOCICLIB
     Indication: Breast cancer metastatic
     Dosage: 125 MG, CYCLIC (OD TAKEN WITH OR WITHOUT FOOD FOR 21 DAYS FOLLOWED BY 7 DAYS OFF TREATMENT)
     Route: 048
     Dates: start: 20210625
  2. IBRANCE [Suspect]
     Active Substance: PALBOCICLIB
     Indication: Breast cancer female
     Dosage: 125 MG, CYCLIC (OD TAKEN WITH OR WITHOUT FOOD FOR 21 DAYS FOLLOWED BY 7 DAYS OFF TREATMENT)
     Route: 048
     Dates: start: 20210701
  3. IBRANCE [Suspect]
     Active Substance: PALBOCICLIB
     Dosage: 125 MG, CYCLIC (TAKE 1 TAB OD WITH OR WITHOUT FOOD FOR 21 DAYS FOLLOWED BY 7 DAYS OFF)
     Route: 048
     Dates: start: 20210712
  4. IBRANCE [Suspect]
     Active Substance: PALBOCICLIB
     Dosage: 125 MG, CYCLIC (TAKE 1 TAB OD WITH OR WITHOUT FOOD FOR 21 DAYS FOLLOWED BY 7 DAYS OFF)
     Route: 048
     Dates: start: 20210728
  5. IBRANCE [Suspect]
     Active Substance: PALBOCICLIB
     Dosage: 125 MG, CYCLIC (TAKE 1 TAB OD WITH OR WITHOUT FOOD FOR 21 DAYS FOLLOWED BY 7 DAYS OFF)
     Route: 048
     Dates: start: 20210729
  6. IBRANCE [Suspect]
     Active Substance: PALBOCICLIB
     Dosage: 125 MG, CYCLIC (TAKE 1 TAB OD WITH OR WITHOUT FOOD FOR 21 DAYS FOLLOWED BY 7 DAYS OFF)
     Route: 048
     Dates: start: 20210908
  7. IBRANCE [Suspect]
     Active Substance: PALBOCICLIB
     Dosage: 100 MG, CYCLIC (TAKE 1 TAB OD WITH OR WITHOUT FOOD FOR 21 DAYS FOLLOWED BY 7 DAYS)
     Route: 048
     Dates: start: 20211006
  8. IBRANCE [Suspect]
     Active Substance: PALBOCICLIB
     Dosage: 100 MG, CYCLIC (OD TAKEN WITH OR WITHOUT FOOD FOR 21 DAYS FOLLOWED BY 7 DAYS OFF TREATMENT)
     Route: 048
     Dates: start: 20211007
  9. IBRANCE [Suspect]
     Active Substance: PALBOCICLIB
     Dosage: 100 MG, 1X/DAY (TAKE 1 TABLET EVERY DAY)
     Route: 048
     Dates: start: 20211008
  10. IBRANCE [Suspect]
     Active Substance: PALBOCICLIB
     Dosage: 100 MG, CYCLIC (TAKE 1 TAB OD WITH OR WITHOUT FOOD FOR 21 DAYS FOLLOWED BY 7 DAYS)
     Route: 048
     Dates: start: 20211104
  11. IBRANCE [Suspect]
     Active Substance: PALBOCICLIB
     Dosage: 100 MG, CYCLIC (TAKE 1 TAB OD WITH OR WITHOUT FOOD FOR 21 DAYS FOLLOWED BY 7 DAYS)
     Route: 048
     Dates: start: 20211203
  12. IBRANCE [Suspect]
     Active Substance: PALBOCICLIB
     Dosage: 100 MG, CYCLIC (TAKE 1 TAB OD WITH OR WITHOUT FOOD FOR 21 DAYS FOLLOWED BY 7 DAYS)
     Route: 048
     Dates: start: 20211217
  13. IBRANCE [Suspect]
     Active Substance: PALBOCICLIB
     Dosage: 100 MG, CYCLIC (TAKE 1 TAB OD WITH OR WITHOUT FOOD FOR 21 DAYS FOLLOWED BY 7 DAYS)
     Route: 048
     Dates: start: 20220426
  14. IBRANCE [Suspect]
     Active Substance: PALBOCICLIB
     Dosage: 100 MG, CYCLIC (TAKE 1 TAB OD WITH OR WITHOUT FOOD FOR 21 DAYS FOLLOWED BY 7 DAYS)
     Route: 048
     Dates: start: 20220913
  15. IBRANCE [Suspect]
     Active Substance: PALBOCICLIB
     Dosage: 100 MG, CYCLIC (TAKE 1 TAB OD WITH OR WITHOUT FOOD FOR 21 DAYS FOLLOWED BY 7 DAYS)
     Route: 048
     Dates: start: 20221110
  16. IBRANCE [Suspect]
     Active Substance: PALBOCICLIB
     Dosage: 100 MG, CYCLIC (TAKE 1 TAB OD WITH OR WITHOUT FOOD FOR 21 DAYS FOLLOWED BY 7 DAYS)
     Route: 048
     Dates: start: 20221123
  17. IBRANCE [Suspect]
     Active Substance: PALBOCICLIB
     Dosage: 100 MG, CYCLIC (TAKE 1 TAB OD WITH OR WITHOUT FOOD FOR 21 DAYS FOLLOWED BY 7 DAYS)
     Route: 048
     Dates: start: 20221128
  18. IBRANCE [Suspect]
     Active Substance: PALBOCICLIB
     Dosage: 75 MG, CYCLIC (TAKE 1 TAB OD WITH OR WITHOUT FOOD FOR 21 DAYS FOLLOWED BY 7 DAYS)
     Route: 048
     Dates: start: 20221213
  19. IBRANCE [Suspect]
     Active Substance: PALBOCICLIB
     Dosage: 75 MG, CYCLIC (TAKE 1 TAB OD WITH OR WITHOUT FOOD FOR 21 DAYS FOLLOWED BY 7 DAYS)
     Route: 048
     Dates: start: 20221215
  20. IBRANCE [Suspect]
     Active Substance: PALBOCICLIB
     Dosage: 75 MG, CYCLIC (TAKE 1 TAB OD WITH OR WITHOUT FOOD FOR 21 DAYS FOLLOWED BY 7 DAYS)
     Route: 048
     Dates: start: 20230207
  21. IBRANCE [Suspect]
     Active Substance: PALBOCICLIB
     Dosage: 75 MG, CYCLIC (TAKE 1 TAB OD WITH OR WITHOUT FOOD FOR 21 DAYS FOLLOWED BY 7 DAYS)
     Route: 048
     Dates: start: 20230303
  22. IBRANCE [Suspect]
     Active Substance: PALBOCICLIB
     Dosage: 75 MG, CYCLIC (TAKE 1 TAB OD WITH OR WITHOUT FOOD FOR 21 DAYS FOLLOWED BY 7 DAYS)
     Route: 048
     Dates: start: 20230317
  23. IBRANCE [Suspect]
     Active Substance: PALBOCICLIB
     Dosage: 75 MG, CYCLIC (TAKE 1 TAB OD WITH OR WITHOUT FOOD FOR 21 DAYS FOLLOWED BY 7 DAYS)
     Route: 048
     Dates: start: 20230403
  24. IBRANCE [Suspect]
     Active Substance: PALBOCICLIB
     Dosage: 75 MG, CYCLIC (TAKE 1 TAB OD WITH OR WITHOUT FOOD FOR 21 DAYS FOLLOWED BY 7 DAYS)
     Route: 048
     Dates: start: 20230526
  25. IBRANCE [Suspect]
     Active Substance: PALBOCICLIB
     Dosage: 75 MG, CYCLIC (TAKE 1 TAB OD WITH OR WITHOUT FOOD FOR 21 DAYS FOLLOWED BY 7 DAYS)
     Route: 048
     Dates: start: 20230528
  26. IBRANCE [Suspect]
     Active Substance: PALBOCICLIB
     Dosage: 75 MG, CYCLIC (TAKE 1 TAB OD WITH OR WITHOUT FOOD FOR 21 DAYS FOLLOWED BY 7 DAYS)
     Route: 048
     Dates: start: 20230623
  27. IBRANCE [Suspect]
     Active Substance: PALBOCICLIB
     Dosage: 75 MG, CYCLIC (TAKE 1 TAB OD WITH OR WITHOUT FOOD FOR 21 DAYS FOLLOWED BY 7 DAYS)
     Route: 048
     Dates: start: 20230628
  28. IBRANCE [Suspect]
     Active Substance: PALBOCICLIB
     Dosage: 75 MG, CYCLIC (TAKE 1 TAB OD WITH OR WITHOUT FOOD FOR 21 DAYS FOLLOWED BY 7 DAYS)
     Route: 048
     Dates: start: 20230721
  29. IBRANCE [Suspect]
     Active Substance: PALBOCICLIB
     Dosage: 75 MG, CYCLIC (TAKE 1 TAB OD WITH OR WITHOUT FOOD FOR 21 DAYS FOLLOWED BY 7 DAYS)
     Route: 048
     Dates: start: 20230916
  30. IBRANCE [Suspect]
     Active Substance: PALBOCICLIB
     Dosage: 75 MG, CYCLIC (TAKE 1 TAB OD WITH OR WITHOUT FOOD FOR 21 DAYS FOLLOWED BY 7 DAYS)
     Route: 048
     Dates: start: 20230918
  31. IBRANCE [Suspect]
     Active Substance: PALBOCICLIB
     Dosage: 75 MG, CYCLIC (TAKE 1 TAB OD WITH OR WITHOUT FOOD FOR 21 DAYS FOLLOWED BY 7 DAYS)
     Route: 048
     Dates: start: 20230919
  32. IBRANCE [Suspect]
     Active Substance: PALBOCICLIB
     Dosage: 75 MG, CYCLIC (TAKE 1 TAB OD WITH OR WITHOUT FOOD FOR 21 DAYS FOLLOWED BY 7 DAYS)
     Route: 048
     Dates: start: 20231012
  33. IBRANCE [Suspect]
     Active Substance: PALBOCICLIB
     Dosage: 75 MG, CYCLIC (TAKE 1 TAB OD WITH OR WITHOUT FOOD FOR 21 DAYS FOLLOWED BY 7 DAYS)
     Route: 048
     Dates: start: 20231109
  34. IBRANCE [Suspect]
     Active Substance: PALBOCICLIB
     Dosage: 75 MG, CYCLIC (TAKE 1 TAB OD WITH OR WITHOUT FOOD FOR 21 DAYS FOLLOWED BY 7 DAYS)
     Route: 048
     Dates: start: 20231114
  35. IBRANCE [Suspect]
     Active Substance: PALBOCICLIB
     Dosage: 75 MG, CYCLIC (TAKE 1 TAB OD WITH OR WITHOUT FOOD FOR 21 DAYS FOLLOWED BY 7 DAYS)
     Route: 048
     Dates: start: 20231211
  36. IBRANCE [Suspect]
     Active Substance: PALBOCICLIB
     Dosage: 75 MG, CYCLIC (TAKE 1 TAB OD WITH OR WITHOUT FOOD FOR 21 DAYS FOLLOWED BY 7 DAYS)
     Route: 048
     Dates: start: 20240212
  37. IBRANCE [Suspect]
     Active Substance: PALBOCICLIB
     Dosage: 75 MG, CYCLIC (TAKE 1 TAB OD WITH OR WITHOUT FOOD FOR 21 DAYS FOLLOWED BY 7 DAYS)
     Route: 048
     Dates: start: 20240404
  38. IBRANCE [Suspect]
     Active Substance: PALBOCICLIB
     Dosage: 75 MG, CYCLIC (TAKE 1 TAB OD WITH OR WITHOUT FOOD FOR 21 DAYS FOLLOWED BY 7 DAYS)
     Route: 048
     Dates: start: 20240408
  39. IBRANCE [Suspect]
     Active Substance: PALBOCICLIB
     Dosage: 75 MG, CYCLIC (TAKE 1 TAB OD WITH OR WITHOUT FOOD FOR 21 DAYS FOLLOWED BY 7 DAYS)
     Route: 048
     Dates: start: 20240506
  40. IBRANCE [Suspect]
     Active Substance: PALBOCICLIB
     Dosage: 75 MG, CYCLIC (TAKE 1 TAB OD WITH OR WITHOUT FOOD FOR 21 DAYS FOLLOWED BY 7 DAYS)
     Route: 048
     Dates: start: 20240628
  41. IBRANCE [Suspect]
     Active Substance: PALBOCICLIB
     Dosage: 75 MG, CYCLIC (TAKE 1 TAB OD WITH OR WITHOUT FOOD FOR 21 DAYS FOLLOWED BY 7 DAYS)
     Route: 048
     Dates: start: 20240725
  42. IBRANCE [Suspect]
     Active Substance: PALBOCICLIB
     Dosage: 75 MG, CYCLIC (TAKE 1 TAB OD WITH OR WITHOUT FOOD FOR 21 DAYS FOLLOWED BY 7 DAYS)
     Route: 048
     Dates: start: 202408
  43. AROMASIN [Concomitant]
     Active Substance: EXEMESTANE
     Dosage: 25 MG, DAILY (TAKE 1 TABLET EVERY DAY, EVERY 28 X 24 CYCLES )
     Route: 048
     Dates: start: 20210701, end: 20230720
  44. EXEMESTANE [Concomitant]
     Active Substance: EXEMESTANE
     Dosage: 25 MG, DAILY (TAKE 1 TABLET EVERYDAY)
     Route: 048
     Dates: start: 20230316
  45. EXEMESTANE [Concomitant]
     Active Substance: EXEMESTANE
     Dosage: 25 MG, DAILY
     Route: 048
     Dates: start: 20240229
  46. EXEMESTANE [Concomitant]
     Active Substance: EXEMESTANE
     Dosage: 25 MG, DAILY (TAKE 1 TABLET EVERYDAY)
     Route: 048
     Dates: start: 20240529

REACTIONS (2)
  - White blood cell count decreased [Unknown]
  - Neutrophil count decreased [Unknown]
